FAERS Safety Report 5057398-3 (Version None)
Quarter: 2006Q3

REPORT INFORMATION
  Report Type: 
  Country: None (occurrence: None)
  Receive Date: 20060721
  Receipt Date: 20050920
  Transmission Date: 20061208
  Serious: No
  Sender: FDA-Public Use
  Company Number: US-GLAXOSMITHKLINE-A0575040A

PATIENT
  Age: 80 Year
  Sex: Male

DRUGS (23)
  1. AVANDIA [Suspect]
     Indication: DIABETES MELLITUS NON-INSULIN-DEPENDENT
     Dosage: 8MG PER DAY
     Route: 048
     Dates: start: 20010101, end: 20050301
  2. HUMALOG [Concomitant]
  3. LANTUS [Concomitant]
  4. NOVOLIN R [Concomitant]
  5. LOSARTAN POSTASSIUM [Concomitant]
  6. SYNTHROID [Concomitant]
  7. FOSAMAX [Concomitant]
  8. FUROSEMIDE [Concomitant]
  9. SPIRONOLACTONE [Concomitant]
  10. DUONEB [Concomitant]
  11. MUCINEX [Concomitant]
  12. OMEPRAZOLE [Concomitant]
  13. EZETIMIBE [Concomitant]
  14. ZOCOR [Concomitant]
  15. NIACIN [Concomitant]
  16. MULTI-VITAMIN [Concomitant]
  17. FLONASE [Concomitant]
  18. TERAZOSIN HCL [Concomitant]
  19. ASPIRIN [Concomitant]
  20. CALCIUM GLUCONATE [Concomitant]
  21. ACETAMINOPHEN [Concomitant]
  22. POTASSIUM CHLORIDE [Concomitant]
  23. COLACE [Concomitant]

REACTIONS (4)
  - ARTERIAL DISORDER [None]
  - CORONARY ARTERY DISEASE [None]
  - OEDEMA PERIPHERAL [None]
  - RENAL DISORDER [None]
